FAERS Safety Report 11417793 (Version 2)
Quarter: 2015Q3

REPORT INFORMATION
  Report Type: Report from Study
  Country: DE (occurrence: DE)
  Receive Date: 20150825
  Receipt Date: 20150918
  Transmission Date: 20151125
  Serious: Yes (Other)
  Sender: FDA-Public Use
  Company Number: DE-GILEAD-2015-0168047

PATIENT
  Age: 55 Year
  Sex: Female
  Weight: 64 kg

DRUGS (2)
  1. SOFOSBUVIR [Suspect]
     Active Substance: SOFOSBUVIR
     Indication: CHRONIC HEPATITIS C
     Dosage: 400 MG, QD
     Route: 048
     Dates: start: 20140901, end: 20141123
  2. COPEGUS [Suspect]
     Active Substance: RIBAVIRIN
     Indication: CHRONIC HEPATITIS C
     Dosage: 1000 MG, QD
     Route: 048
     Dates: start: 20140901, end: 20141123

REACTIONS (1)
  - Drug dependence [Unknown]

NARRATIVE: CASE EVENT DATE: 20140915
